FAERS Safety Report 21325181 (Version 2)
Quarter: 2022Q3

REPORT INFORMATION
  Report Type: Spontaneous
  Country: AU (occurrence: AU)
  Receive Date: 20220912
  Receipt Date: 20220916
  Transmission Date: 20221027
  Serious: Yes (Other)
  Sender: FDA-Public Use
  Company Number: AU-SCALL-2022-AU-000237

PATIENT
  Sex: Male

DRUGS (1)
  1. DUTASTERIDE\TAMSULOSIN HYDROCHLORIDE [Suspect]
     Active Substance: DUTASTERIDE\TAMSULOSIN HYDROCHLORIDE
     Indication: Product used for unknown indication
     Route: 065

REACTIONS (7)
  - Choking [Unknown]
  - Oesophageal rupture [Unknown]
  - Feeding disorder [Unknown]
  - Oesophageal dilation procedure [Unknown]
  - Condition aggravated [Unknown]
  - Dysphagia [Not Recovered/Not Resolved]
  - Pharyngeal disorder [Unknown]
